FAERS Safety Report 8232702-3 (Version None)
Quarter: 2012Q1

REPORT INFORMATION
  Report Type: 
  Country: None (occurrence: None)
  Receive Date: 20120323
  Receipt Date: 20120320
  Transmission Date: 20120608
  Serious: Yes (Death, Other)
  Sender: FDA-Public Use
  Company Number: PHHY2012DE025041

PATIENT

DRUGS (7)
  1. ITRACONAZOLE [Concomitant]
  2. COTRIM [Concomitant]
     Dosage: UNK UKN, UNK
  3. ACYCLOVIR [Concomitant]
  4. EVEROLIMUS [Suspect]
     Indication: LUNG TRANSPLANT
     Dosage: UNK UKN, UNK
  5. PREDNISOLONE [Concomitant]
     Dosage: UNK UKN, UNK
  6. CYCLOSPORINE [Suspect]
     Indication: LUNG TRANSPLANT
     Dosage: UNK UKN, UNK
  7. MYCOPHENOLATE MOFETIL [Concomitant]

REACTIONS (2)
  - CIRCULATORY COLLAPSE [None]
  - HAEMOLYTIC URAEMIC SYNDROME [None]
